FAERS Safety Report 24091553 (Version 1)
Quarter: 2024Q3

REPORT INFORMATION
  Report Type: Report from Study
  Country: US (occurrence: US)
  Receive Date: 20240715
  Receipt Date: 20240715
  Transmission Date: 20241017
  Serious: Yes (Other)
  Sender: PFIZER
  Company Number: US-PFIZER INC-PV202400090609

PATIENT
  Age: 69 Year
  Sex: Female
  Weight: 45.4 kg

DRUGS (16)
  1. LINEZOLID [Suspect]
     Active Substance: LINEZOLID
     Dosage: UNK
     Dates: start: 2024
  2. NUZYRA [Suspect]
     Active Substance: OMADACYCLINE
     Indication: Mycobacterium abscessus infection
     Dosage: 300 MG, 1X/DAY AT 2 AM
     Route: 048
     Dates: start: 20240430
  3. NUZYRA [Suspect]
     Active Substance: OMADACYCLINE
     Indication: Pneumonia bacterial
  4. NUZYRA [Suspect]
     Active Substance: OMADACYCLINE
     Indication: Sinusitis bacterial
  5. AMIKACIN [Suspect]
     Active Substance: AMIKACIN
     Dosage: UNK
     Dates: start: 2024
  6. ASPIRIN [Concomitant]
     Active Substance: ASPIRIN
     Dosage: LOW DOSE TABLETS
  7. LIDODERM [Concomitant]
     Active Substance: LIDOCAINE
     Dosage: PATCH
  8. ONDANSETRON [Concomitant]
     Active Substance: ONDANSETRON
     Dosage: UNK
  9. UBRELVY [Concomitant]
     Active Substance: UBROGEPANT
     Dosage: UNK
  10. OMEPRAZOLE [Concomitant]
     Active Substance: OMEPRAZOLE
     Dosage: UNK
  11. PROCHLORPERAZINE [Concomitant]
     Active Substance: PROCHLORPERAZINE
     Dosage: UNK
  12. AJOVY [Concomitant]
     Active Substance: FREMANEZUMAB-VFRM
     Dosage: UNK
  13. DICLOFENAC [Concomitant]
     Active Substance: DICLOFENAC
     Dosage: UNK
  14. BACLOFEN [Concomitant]
     Active Substance: BACLOFEN
     Dosage: UNK
  15. AMITRIPTYLINE [Concomitant]
     Active Substance: AMITRIPTYLINE
     Indication: Trigeminal neuralgia
     Dosage: STOPPED FOR 10 DAY
     Dates: start: 2016
  16. LACTULOSE [Concomitant]
     Active Substance: LACTULOSE
     Dosage: 10/15 GRAM PER MILLILITRE

REACTIONS (12)
  - Clostridium difficile infection [Unknown]
  - Eye swelling [Unknown]
  - Eye inflammation [Unknown]
  - Swelling face [Unknown]
  - Inflammation [Unknown]
  - Tooth discolouration [Not Recovered/Not Resolved]
  - Taste disorder [Not Recovered/Not Resolved]
  - Weight decreased [Not Recovered/Not Resolved]
  - Diarrhoea [Unknown]
  - Nausea [Not Recovered/Not Resolved]
  - Vomiting [Unknown]
  - Blood pressure increased [Unknown]

NARRATIVE: CASE EVENT DATE: 20240101
